FAERS Safety Report 15393180 (Version 1)
Quarter: 2018Q3

REPORT INFORMATION
  Report Type: Spontaneous
  Country: US (occurrence: US)
  Receive Date: 20180916
  Receipt Date: 20180916
  Transmission Date: 20181010
  Serious: Yes (Other)
  Sender: FDA-Public Use
  Company Number: None

PATIENT
  Age: 49 Year
  Weight: 112.5 kg

DRUGS (1)
  1. KETAMINE 90 MG COMPOUNDED BY A PHARMACY [Suspect]
     Active Substance: KETAMINE
     Indication: DEPRESSION

REACTIONS (5)
  - Hypoaesthesia [None]
  - Head discomfort [None]
  - Headache [None]
  - Chest pain [None]
  - Cerebrovascular accident [None]

NARRATIVE: CASE EVENT DATE: 20180813
